FAERS Safety Report 25110274 (Version 2)
Quarter: 2025Q2

REPORT INFORMATION
  Report Type: Spontaneous
  Country: US (occurrence: US)
  Receive Date: 20250324
  Receipt Date: 20250521
  Transmission Date: 20250716
  Serious: No
  Sender: STALLERGENES
  Company Number: US-STALCOR-2025-AER-00462

PATIENT
  Age: 6 Year
  Sex: Female

DRUGS (4)
  1. PALFORZIA [Suspect]
     Active Substance: PEANUT
     Indication: Food allergy
     Dosage: 300MG: MIX CONTENTS OF 1 SACHET IN FOOD AS DIRECTED AND TAKE BY MOUTH ONE TIME DAILY AT SAME TIME EA
     Route: 048
     Dates: start: 2024
  2. PALFORZIA [Suspect]
     Active Substance: PEANUT
     Dosage: LATEST DISPENSE OF 300MG MAINTENANCE DOSE WAS ON 11-FEB-2025
     Route: 048
     Dates: start: 202502
  3. EPIPEN [Concomitant]
     Active Substance: EPINEPHRINE
     Indication: Product used for unknown indication
  4. VITAMINS NOS [Concomitant]
     Active Substance: VITAMINS
     Indication: Product used for unknown indication

REACTIONS (4)
  - Gastroenteritis viral [Unknown]
  - Eructation [Unknown]
  - Abdominal pain upper [Unknown]
  - Product dose omission issue [Unknown]
